FAERS Safety Report 5081879-X (Version None)
Quarter: 2006Q3

REPORT INFORMATION
  Report Type: 
  Country: None (occurrence: None)
  Receive Date: 20060811
  Receipt Date: 20060731
  Transmission Date: 20061208
  Serious: Yes (Other)
  Sender: FDA-Public Use
  Company Number: 29407

PATIENT
  Sex: Female

DRUGS (2)
  1. ALDARA [Suspect]
     Indication: ANOGENITAL WARTS
     Dosage: 1 UNSPEC.
     Route: 061
     Dates: start: 20060605, end: 20060617
  2. ANTIHISTAMINE [Concomitant]

REACTIONS (3)
  - APPLICATION SITE ULCER [None]
  - VULVAL ULCERATION [None]
  - VULVITIS [None]
